FAERS Safety Report 8103235-X (Version None)
Quarter: 2012Q1

REPORT INFORMATION
  Report Type: 
  Country: None (occurrence: None)
  Receive Date: 20120127
  Receipt Date: 20120112
  Transmission Date: 20120608
  Serious: Yes (Other)
  Sender: FDA-Public Use
  Company Number: 2011-5221

PATIENT
  Age: 48 Year
  Sex: Female

DRUGS (2)
  1. DYSPORT [Suspect]
     Indication: SKIN WRINKLING
     Dosage: 36 UNITS (36 UNITS, SINGLE CYCLE), INTRADERMAL
     Route: 023
     Dates: start: 20110502, end: 20110502
  2. MULTI-VITAMINS [Concomitant]

REACTIONS (1)
  - NEOPLASM MALIGNANT [None]
